FAERS Safety Report 22400105 (Version 1)
Quarter: 2023Q2

REPORT INFORMATION
  Report Type: Spontaneous
  Country: HU (occurrence: HU)
  Receive Date: 20230602
  Receipt Date: 20230602
  Transmission Date: 20230722
  Serious: Yes (Other)
  Sender: FDA-Public Use
  Company Number: HU-VITABALANS-038-2022

PATIENT
  Age: 45 Year
  Sex: Male

DRUGS (2)
  1. IBUPROFEN [Suspect]
     Active Substance: IBUPROFEN
     Indication: Headache
     Dosage: 2 OR 3 TABLETS EVERY DAY
     Route: 065
  2. IBUPROFEN [Suspect]
     Active Substance: IBUPROFEN
     Dosage: OFTEN 3-4 TABLETS A DAY
     Route: 065

REACTIONS (3)
  - Drug abuse [Unknown]
  - Medication overuse headache [Unknown]
  - Headache [Unknown]
